FAERS Safety Report 4289961-1 (Version None)
Quarter: 2004Q1

REPORT INFORMATION
  Report Type: 
  Country: None (occurrence: None)
  Receive Date: 20040206
  Receipt Date: 20031128
  Transmission Date: 20041129
  Serious: Yes (Hospitalization)
  Sender: FDA-Public Use
  Company Number: 03287

PATIENT
  Age: 62 Year
  Sex: Male

DRUGS (1)
  1. FLUVOXAMINI MALEAS TABLET 50 MG [Suspect]
     Indication: DEPRESSION
     Dosage: 50 MG, ORAL
     Route: 048
     Dates: start: 20030628, end: 20031104

REACTIONS (6)
  - CHEST PAIN [None]
  - DYSPNOEA EXERTIONAL [None]
  - HYPOXIA [None]
  - PHARMACEUTICAL PRODUCT COMPLAINT [None]
  - SINUS TACHYCARDIA [None]
  - TACHYPNOEA [None]
